FAERS Safety Report 7954918-3 (Version None)
Quarter: 2011Q4

REPORT INFORMATION
  Report Type: 
  Country: None (occurrence: None)
  Receive Date: 20111129
  Receipt Date: 20111114
  Transmission Date: 20120403
  Serious: Yes (Hospitalization)
  Sender: FDA-Public Use
  Company Number: IT-ACCORD-011423

PATIENT
  Sex: Male

DRUGS (4)
  1. GEMCITABINE [Suspect]
     Indication: BLADDER ADENOCARCINOMA STAGE IV
     Dosage: 1900.00-MG INTRAVENOUS
     Route: 042
     Dates: start: 20100611, end: 20100819
  2. LIMICAN (LIMICAN) [Concomitant]
  3. SOLDESAM (SOLDESAM) [Concomitant]
  4. ZOFRAN [Concomitant]

REACTIONS (1)
  - PANCYTOPENIA [None]
